FAERS Safety Report 8347572-2 (Version None)
Quarter: 2012Q2

REPORT INFORMATION
  Report Type: 
  Country: None (occurrence: None)
  Receive Date: 20120509
  Receipt Date: 20120425
  Transmission Date: 20120825
  Serious: Yes (Other)
  Sender: FDA-Public Use
  Company Number: BR-AMGEN-BRASP2012024699

PATIENT
  Age: 64 Year
  Sex: Female
  Weight: 84 kg

DRUGS (5)
  1. ENBREL [Suspect]
     Indication: PSORIATIC ARTHROPATHY
     Dosage: 50 MG, 1X/WEEK
     Route: 058
     Dates: start: 20120101
  2. PREDNISONE TAB [Suspect]
     Indication: MUSCULOSKELETAL PAIN
     Dosage: 15 MG, 1X/DAY
  3. DORFLEX [Concomitant]
     Indication: PAIN
     Dosage: 30 MG, AS NEEDED
  4. TOFRANIL [Concomitant]
     Dosage: 500 MG, 1X/DAY
  5. RETINOL [Concomitant]
     Dosage: 400 MG, 1X/DAY

REACTIONS (6)
  - ARTHRALGIA [None]
  - INJECTION SITE PAIN [None]
  - INJECTION SITE HAEMATOMA [None]
  - OEDEMA PERIPHERAL [None]
  - MUSCULOSKELETAL PAIN [None]
  - WEIGHT INCREASED [None]
